FAERS Safety Report 10377754 (Version 1)
Quarter: 2014Q1

REPORT INFORMATION
  Report Type: Spontaneous
  Country: US (occurrence: None)
  Receive Date: 20140306
  Receipt Date: 20140306
  Transmission Date: 20141002
  Serious: Yes (Hospitalization)
  Sender: FDA-Public Use
  Company Number: 163-21880-13031870

PATIENT
  Age: 60 Year
  Sex: Male

DRUGS (9)
  1. REVLIMID (LENALIDOMIDE) (CAPSULES) [Suspect]
     Indication: LYMPHOMA
     Dosage: 5 MG, 21 IN 21 D, PO
     Route: 048
     Dates: start: 20121003
  2. ACTOS (PIOGLITAZONE) (UNKNOWN) [Concomitant]
  3. CARVEDILOL (CARVEDILOL) (UNKNOWN) [Concomitant]
  4. FENOFIBRATE (FENOFIBRATE) (UNKNOWN) [Concomitant]
  5. GLYBURIDE (GLIBENCLAMIDE) (UNKNOWN) [Concomitant]
  6. HYDROCODONE-ACETAMINOPHEN (VICODIN) (UNKNOWN) [Concomitant]
  7. LEVOTHYROXINE SODIUM (LEVOTHYROXINE SODIUM) (UNKNOWN) [Concomitant]
  8. METFORMIN HCL (METFORMIN HYDROCHLORIDE) (UNKNOWN) [Concomitant]
  9. OMEPRAZOLE (OMEPRAZOLE) (UNKNOWN) [Concomitant]

REACTIONS (1)
  - Headache [None]
